FAERS Safety Report 12724280 (Version 1)
Quarter: 2016Q3

REPORT INFORMATION
  Report Type: Spontaneous
  Country: US (occurrence: US)
  Receive Date: 20160907
  Receipt Date: 20160907
  Transmission Date: 20161109
  Serious: Yes (Other)
  Sender: FDA-Public Use
  Company Number: None

PATIENT
  Age: 39 Year
  Sex: Female
  Weight: 47.17 kg

DRUGS (1)
  1. SODIUM CARBONATE [Suspect]
     Active Substance: SODIUM CARBONATE

REACTIONS (8)
  - Pruritus [None]
  - Chest pain [None]
  - Skin disorder [None]
  - Ear pruritus [None]
  - Lip swelling [None]
  - Burning sensation [None]
  - Throat irritation [None]
  - Hypersensitivity [None]

NARRATIVE: CASE EVENT DATE: 20160826
